FAERS Safety Report 4622960-6 (Version None)
Quarter: 2005Q1

REPORT INFORMATION
  Report Type: 
  Country: None (occurrence: None)
  Receive Date: 20050330
  Receipt Date: 20050307
  Transmission Date: 20050727
  Serious: Yes (Death, Other)
  Sender: FDA-Public Use
  Company Number: PHBS2005DK03339

PATIENT
  Age: 31 Year
  Sex: Female
  Weight: 50 kg

DRUGS (9)
  1. LEPONEX [Suspect]
     Indication: SCHIZOPHRENIA
     Route: 048
  2. GESTODENE AND [Suspect]
     Route: 065
  3. ETHYLESTRADIOL [Suspect]
     Route: 065
  4. DURASCAN [Suspect]
     Dosage: 1 DF, QD
     Route: 048
  5. ZYPREXA [Concomitant]
     Route: 065
     Dates: start: 20040401
  6. ORAP [Concomitant]
     Route: 065
     Dates: start: 20040223
  7. RIVOTRIL [Concomitant]
     Route: 065
     Dates: start: 20040906
  8. LYSANTIN [Concomitant]
     Route: 065
     Dates: start: 20040329
  9. PAMOL [Concomitant]
     Route: 065
     Dates: start: 20030804

REACTIONS (7)
  - CARDIAC ARREST [None]
  - OVARIAN CYST [None]
  - PULMONARY EMBOLISM [None]
  - PULMONARY HAEMORRHAGE [None]
  - PULMONARY OEDEMA [None]
  - RESPIRATORY DISTRESS [None]
  - RESUSCITATION [None]
